FAERS Safety Report 23692544 (Version 1)
Quarter: 2024Q1

REPORT INFORMATION
  Report Type: Spontaneous
  Country: US (occurrence: None)
  Receive Date: 20240330
  Receipt Date: 20240330
  Transmission Date: 20240410
  Serious: No
  Sender: FDA-Public Use
  Company Number: None

PATIENT
  Age: 81 Year
  Sex: Male
  Weight: 74.25 kg

DRUGS (1)
  1. XTANDI [Suspect]
     Active Substance: ENZALUTAMIDE
     Indication: Prostate cancer
     Dosage: 80 MG TWICE A DAY ORAL
     Route: 048
     Dates: start: 20240105, end: 20240325

REACTIONS (3)
  - Rash [None]
  - Pruritus [None]
  - Product substitution issue [None]

NARRATIVE: CASE EVENT DATE: 20240330
